FAERS Safety Report 7970641-3 (Version None)
Quarter: 2011Q4

REPORT INFORMATION
  Report Type: 
  Country: None (occurrence: None)
  Receive Date: 20111122
  Receipt Date: 20110812
  Transmission Date: 20120403
  Serious: Yes (Other)
  Sender: FDA-Public Use
  Company Number: PHHY2011US65204

PATIENT
  Age: 44 Year
  Sex: Female

DRUGS (6)
  1. KLOR-CON [Concomitant]
  2. VITAMIN D [Concomitant]
  3. RITALIN [Concomitant]
  4. VITAMIN B NOS (VITAMIN B NOS) [Concomitant]
  5. GILENYA [Suspect]
     Indication: MULTIPLE SCLEROSIS
     Dosage: 0.5 MG, QD, ORAL
     Route: 048
     Dates: start: 20110715
  6. HYDROCHLOROTHIAZID (HYDROCHLOROTHIAZIDE) TABLET [Concomitant]

REACTIONS (4)
  - FATIGUE [None]
  - DYSPNOEA [None]
  - ORAL HERPES [None]
  - PYREXIA [None]
